FAERS Safety Report 5365791-4 (Version None)
Quarter: 2007Q2

REPORT INFORMATION
  Report Type: 
  Country: None (occurrence: None)
  Receive Date: 20070613
  Receipt Date: 20070531
  Transmission Date: 20071010
  Serious: Yes (Life-Threatening, Hospitalization)
  Sender: FDA-Public Use
  Company Number: WSDF_00609

PATIENT
  Age: 72 Year
  Sex: Female
  Weight: 115 kg

DRUGS (14)
  1. WINRHO SDF [Suspect]
     Indication: IDIOPATHIC THROMBOCYTOPENIC PURPURA
     Dosage: 74.78 UG/KG ONCE; IV
     Route: 042
     Dates: start: 20070115, end: 20070115
  2. SOTALOL HYDROCHLORIDE [Concomitant]
  3. KCL20 [Concomitant]
  4. DIOVAN [Concomitant]
  5. LIPITOR [Concomitant]
  6. GLUCOPHAGE [Concomitant]
  7. CARDIZEM [Concomitant]
  8. CELEBREX [Concomitant]
  9. CENTRUM [Concomitant]
  10. IRON SULPHATE [Concomitant]
  11. PRANDIN [Concomitant]
  12. ALLOPURINOL [Concomitant]
  13. COUMADIN [Concomitant]
  14. LASIX [Concomitant]

REACTIONS (3)
  - HAEMOLYTIC URAEMIC SYNDROME [None]
  - INFLUENZA LIKE ILLNESS [None]
  - RENAL FAILURE ACUTE [None]
